FAERS Safety Report 9322851 (Version 5)
Quarter: 2014Q3

REPORT INFORMATION
  Report Type: Spontaneous
  Country: US (occurrence: US)
  Receive Date: 20130601
  Receipt Date: 20140918
  Transmission Date: 20150326
  Serious: Yes (Disabling, Other)
  Sender: FDA-Public Use
  Company Number: US-ASTRAZENECA-2013SE38708

PATIENT
  Age: 58 Year
  Sex: Female

DRUGS (35)
  1. PEPTO-BISMOL [Concomitant]
     Active Substance: BISMUTH SUBSALICYLATE\CALCIUM CARBONATE
  2. METFORMIN HCL [Concomitant]
     Active Substance: METFORMIN HYDROCHLORIDE
  3. GABAPENTIN. [Concomitant]
     Active Substance: GABAPENTIN
     Dates: start: 20130201
  4. LOVASTATIN. [Concomitant]
     Active Substance: LOVASTATIN
     Dates: start: 20120131
  5. NEXIUM [Suspect]
     Active Substance: ESOMEPRAZOLE MAGNESIUM
     Indication: GASTROINTESTINAL DISORDER
     Dosage: TWO TIMES A DAY
     Route: 048
  6. TUMS [Concomitant]
     Active Substance: CALCIUM CARBONATE
  7. OMEPRAZOLE. [Concomitant]
     Active Substance: OMEPRAZOLE
     Dates: start: 20120213
  8. LORATADINE. [Concomitant]
     Active Substance: LORATADINE
  9. SYMBICORT [Concomitant]
     Active Substance: BUDESONIDE\FORMOTEROL FUMARATE DIHYDRATE
     Dates: start: 20140829
  10. HYDROCODON [Concomitant]
     Active Substance: HYDROCODONE
     Dates: start: 20140829
  11. ASPIRIN. [Concomitant]
     Active Substance: ASPIRIN
     Dosage: EVERY DAY
  12. LASIX [Concomitant]
     Active Substance: FUROSEMIDE
     Dates: start: 20080929
  13. ZANTAC [Suspect]
     Active Substance: RANITIDINE HYDROCHLORIDE
     Indication: GASTROINTESTINAL DISORDER
     Route: 065
  14. DEXILANT [Concomitant]
     Active Substance: DEXLANSOPRAZOLE
  15. ROLAIDS [Concomitant]
     Active Substance: CALCIUM CARBONATE\MAGNESIUM HYDROXIDE
  16. FOSAMAX [Concomitant]
     Active Substance: ALENDRONATE SODIUM
     Dates: start: 20070725
  17. CETRIZINE HCL [Concomitant]
  18. KLOR CON M20 [Concomitant]
     Dates: start: 20131031
  19. SINGULAIR [Concomitant]
     Active Substance: MONTELUKAST SODIUM
  20. CRESTOR [Concomitant]
     Active Substance: ROSUVASTATIN CALCIUM
     Dates: start: 20101101
  21. PRILOSEC OTC [Suspect]
     Active Substance: OMEPRAZOLE MAGNESIUM
     Route: 048
  22. PROTONIX [Suspect]
     Active Substance: PANTOPRAZOLE SODIUM
     Indication: GASTROINTESTINAL DISORDER
     Route: 065
  23. COREG [Concomitant]
     Active Substance: CARVEDILOL
     Dates: start: 20070725
  24. LYRICA [Concomitant]
     Active Substance: PREGABALIN
  25. NEXIUM [Suspect]
     Active Substance: ESOMEPRAZOLE MAGNESIUM
     Indication: GASTROINTESTINAL DISORDER
     Route: 048
     Dates: start: 20070531
  26. PEPCID [Concomitant]
     Active Substance: FAMOTIDINE
  27. PLAVIX [Concomitant]
     Active Substance: CLOPIDOGREL BISULFATE
     Dates: start: 20080929
  28. ALPRAZOLAM. [Concomitant]
     Active Substance: ALPRAZOLAM
     Route: 048
     Dates: start: 20140829
  29. PREVACID [Suspect]
     Active Substance: LANSOPRAZOLE
     Indication: GASTROINTESTINAL DISORDER
     Route: 065
  30. XANAX [Concomitant]
     Active Substance: ALPRAZOLAM
     Dates: start: 20071019
  31. GABITRIL [Concomitant]
     Active Substance: TIAGABINE HYDROCHLORIDE
     Dates: start: 20090604
  32. ZOCOR [Concomitant]
     Active Substance: SIMVASTATIN
     Dates: start: 20070126
  33. ALENDRONATE SODIUM. [Concomitant]
     Active Substance: ALENDRONATE SODIUM
     Route: 048
     Dates: start: 20140829
  34. NITROSTAT [Concomitant]
     Active Substance: NITROGLYCERIN
     Dates: start: 20111220
  35. CILOSTAZOL. [Concomitant]
     Active Substance: CILOSTAZOL
     Dates: start: 20081101

REACTIONS (26)
  - Bone decalcification [Unknown]
  - Osteoarthritis [Unknown]
  - Wrist fracture [Unknown]
  - Calcium deficiency [Unknown]
  - Peripheral arterial occlusive disease [Unknown]
  - Bone disorder [Unknown]
  - Upper limb fracture [Unknown]
  - Foot fracture [Unknown]
  - Pelvic fracture [Unknown]
  - Osteoporosis [Unknown]
  - Arthritis [Unknown]
  - Tendonitis [Unknown]
  - Cataract [Unknown]
  - Diabetes mellitus [Unknown]
  - Costochondritis [Unknown]
  - Hand fracture [Unknown]
  - Intervertebral disc protrusion [Unknown]
  - Spinal fracture [Unknown]
  - Lymphoma [Unknown]
  - Rheumatoid arthritis [Unknown]
  - Skin cancer [Unknown]
  - Chronic obstructive pulmonary disease [Unknown]
  - Tenosynovitis [Unknown]
  - Joint effusion [Unknown]
  - Sternal fracture [Unknown]
  - Depression [Unknown]

NARRATIVE: CASE EVENT DATE: 200809
